FAERS Safety Report 7753132-4 (Version None)
Quarter: 2011Q3

REPORT INFORMATION
  Report Type: 
  Country: None (occurrence: None)
  Receive Date: 20110915
  Receipt Date: 20110908
  Transmission Date: 20111222
  Serious: Yes (Hospitalization)
  Sender: FDA-Public Use
  Company Number: JP-BRISTOL-MYERS SQUIBB COMPANY-15978612

PATIENT
  Age: 22 Year
  Sex: Female
  Weight: 52 kg

DRUGS (4)
  1. BIPERIDEN HYDROCHLORIDE TAB [Suspect]
     Indication: PARKINSONISM
     Dosage: REGIMEN 2,08-08AUG11-8AUG2011,40MG
     Route: 048
     Dates: start: 20110101, end: 20110808
  2. MIRTAZAPINE [Concomitant]
     Dosage: TABS
     Dates: start: 20110627
  3. SEDIEL [Suspect]
     Indication: ANXIETY
     Dosage: TABS,420MG:08AUG11-8AUG11,DOSE:10MG,TID,24AUG11-ONGOING.
     Route: 048
     Dates: start: 20110627
  4. ABILIFY [Suspect]
     Indication: SCHIZOPHRENIA
     Dosage: 336MG:8AUG11-08AUG11 1D,(8AUG11-8AUG11:336MG,ORAL,1DAY),(24AUG11-ONGOING:24MG,QD,ORAL)
     Route: 048
     Dates: start: 20110101

REACTIONS (4)
  - DYSARTHRIA [None]
  - ALTERED STATE OF CONSCIOUSNESS [None]
  - CONVULSION [None]
  - INTENTIONAL OVERDOSE [None]
